FAERS Safety Report 9921229 (Version 1)
Quarter: 2014Q1

REPORT INFORMATION
  Report Type: Spontaneous
  Country: FR (occurrence: FR)
  Receive Date: 20140225
  Receipt Date: 20140225
  Transmission Date: 20141002
  Serious: Yes (Other)
  Sender: FDA-Public Use
  Company Number: FR-AMGEN-FRASP2014012107

PATIENT
  Age: 77 Year
  Sex: Male

DRUGS (5)
  1. XGEVA [Suspect]
     Indication: PROPHYLAXIS
     Dosage: UNK
     Route: 065
     Dates: start: 201307
  2. ZYTIGA [Concomitant]
     Dosage: 4 TABLETS OF 250 MG EACH MORNING, QD
  3. SOLUPRED                           /00016201/ [Concomitant]
  4. DECAPEPTYL                         /00486501/ [Concomitant]
     Dosage: UNK UNK, Q3MO
  5. VITAMIN D                          /00107901/ [Concomitant]

REACTIONS (2)
  - Depression [Unknown]
  - Muscle disorder [Unknown]
